FAERS Safety Report 9952411 (Version 1)
Quarter: 2014Q1

REPORT INFORMATION
  Report Type: Report from Study
  Country: US (occurrence: US)
  Receive Date: 20140304
  Receipt Date: 20140304
  Transmission Date: 20141002
  Serious: No
  Sender: FDA-Public Use
  Company Number: US-ABBVIE-13P-163-1080147-00

PATIENT
  Age: 70 Year
  Sex: Female

DRUGS (16)
  1. HUMIRA [Suspect]
     Indication: SARCOIDOSIS
     Dates: start: 20130201, end: 20130329
  2. KLOR-CON [Concomitant]
     Indication: BLOOD POTASSIUM DECREASED
  3. CRESTOR [Concomitant]
     Indication: BLOOD CHOLESTEROL
  4. VESICARE [Concomitant]
     Indication: HYPERTONIC BLADDER
  5. BENICAR [Concomitant]
     Indication: BLOOD PRESSURE
  6. NIASPAN [Concomitant]
     Indication: COAGULOPATHY
  7. ASA [Concomitant]
     Indication: PRODUCT USED FOR UNKNOWN INDICATION
  8. METOPROLOL [Concomitant]
     Indication: BLOOD PRESSURE
  9. PREDNISONE [Concomitant]
     Indication: PRODUCT USED FOR UNKNOWN INDICATION
  10. METHOTREXATE [Concomitant]
     Indication: PRODUCT USED FOR UNKNOWN INDICATION
     Dosage: 2.5 MG, 5 TABS ONCE WEEKLY
  11. ZINC [Concomitant]
     Indication: PRODUCT USED FOR UNKNOWN INDICATION
  12. FOLIC ACID [Concomitant]
     Indication: PRODUCT USED FOR UNKNOWN INDICATION
  13. GINKGO-BILOBA [Concomitant]
     Indication: PRODUCT USED FOR UNKNOWN INDICATION
  14. BIOTIN [Concomitant]
     Indication: PRODUCT USED FOR UNKNOWN INDICATION
  15. VITAMIN B12 [Concomitant]
     Indication: PRODUCT USED FOR UNKNOWN INDICATION
  16. TURMERIC [Concomitant]
     Indication: PRODUCT USED FOR UNKNOWN INDICATION

REACTIONS (2)
  - Drug ineffective [Not Recovered/Not Resolved]
  - Pain [Not Recovered/Not Resolved]
